FAERS Safety Report 15426004 (Version 1)
Quarter: 2018Q3

REPORT INFORMATION
  Report Type: Spontaneous
  Country: US (occurrence: US)
  Receive Date: 20180925
  Receipt Date: 20180925
  Transmission Date: 20181010
  Serious: Yes (Hospitalization, Other)
  Sender: FDA-Public Use
  Company Number: US-009507513-1112USA00613

PATIENT
  Sex: Female

DRUGS (4)
  1. FOSAMAX [Suspect]
     Active Substance: ALENDRONATE SODIUM
     Indication: OSTEOPENIA
  2. FOSAMAX [Suspect]
     Active Substance: ALENDRONATE SODIUM
     Indication: OSTEOPOROSIS
     Dosage: 70 MG, QW
     Route: 048
     Dates: start: 2000, end: 200606
  3. FOSAMAX PLUS D [Suspect]
     Active Substance: ALENDRONATE SODIUM\CHOLECALCIFEROL
     Indication: OSTEOPOROSIS
     Dosage: 70 MG/2800 MG, QW
     Route: 048
     Dates: start: 200607, end: 201003
  4. FOSAMAX [Suspect]
     Active Substance: ALENDRONATE SODIUM
     Indication: OSTEOPOROSIS
     Dosage: 10 MG, UNK
     Route: 048
     Dates: start: 199711, end: 20001124

REACTIONS (13)
  - Intervertebral disc disorder [Unknown]
  - Stress fracture [Unknown]
  - Foot fracture [Unknown]
  - Adverse event [Unknown]
  - Pain [Unknown]
  - Fall [Unknown]
  - Femur fracture [Unknown]
  - Anxiety [Unknown]
  - Femur fracture [Unknown]
  - Hypertension [Unknown]
  - Low turnover osteopathy [Unknown]
  - Depression [Unknown]
  - Arthropathy [Unknown]

NARRATIVE: CASE EVENT DATE: 1999
